FAERS Safety Report 6471942-0 (Version None)
Quarter: 2009Q4

REPORT INFORMATION
  Report Type: 
  Country: None (occurrence: None)
  Receive Date: 20091203
  Receipt Date: 20080414
  Transmission Date: 20100525
  Serious: Yes (Hospitalization, Other)
  Sender: FDA-Public Use
  Company Number: CA-ELI_LILLY_AND_COMPANY-CA200804003934

PATIENT
  Age: 67 Year
  Sex: Female

DRUGS (10)
  1. FORTEO [Suspect]
     Indication: OSTEOPOROSIS
     Dosage: 20 UG, DAILY (1/D)
     Route: 058
     Dates: start: 20061012
  2. NEORAL [Concomitant]
  3. CELLCEPT [Concomitant]
  4. PREDNISONE [Concomitant]
  5. PARIET [Concomitant]
  6. PLAQUINOL [Concomitant]
  7. OXAZEPAM [Concomitant]
  8. AMITRIPTYLINE [Concomitant]
  9. MULTI-VIT [Concomitant]
  10. LOVAZA [Concomitant]

REACTIONS (4)
  - ABDOMINAL DISCOMFORT [None]
  - CELLULITIS [None]
  - GASTROINTESTINAL HAEMORRHAGE [None]
  - NAUSEA [None]
